FAERS Safety Report 5618958-1 (Version None)
Quarter: 2008Q1

REPORT INFORMATION
  Report Type: 
  Country: None (occurrence: None)
  Receive Date: 20080207
  Receipt Date: 20080128
  Transmission Date: 20080703
  Serious: Yes (Hospitalization)
  Sender: FDA-Public Use
  Company Number: US-TYCO HEALTHCARE/MALLINCKRODT-T200800108

PATIENT

DRUGS (3)
  1. TECHNESCAN PYP KIT [Suspect]
     Indication: RADIOISOTOPE SCAN
     Dosage: 3 ML, SINGLE
     Route: 042
     Dates: start: 20080123, end: 20080123
  2. ULTRA-TECHNEKOW DTE GENERATOR [Suspect]
     Indication: RADIOISOTOPE SCAN
     Dosage: 29 MCI, SINGLE
     Route: 042
     Dates: start: 20080123, end: 20080123
  3. CHEMOTHERAPEUTICS NOS [Suspect]
     Indication: NON-HODGKIN'S LYMPHOMA
     Dosage: UNK, UNK
     Dates: start: 20080124, end: 20080124

REACTIONS (1)
  - SEPTIC SHOCK [None]
